FAERS Safety Report 9230233 (Version 2)
Quarter: 2013Q2

REPORT INFORMATION
  Report Type: Spontaneous
  Country: US (occurrence: None)
  Receive Date: 20130411
  Receipt Date: 20130411
  Transmission Date: 20140414
  Serious: Yes (Hospitalization)
  Sender: FDA-Public Use
  Company Number: JPI-P-030995

PATIENT
  Age: 33 Year
  Sex: Female

DRUGS (1)
  1. XYREM [Suspect]
     Indication: NARCOLEPSY
     Dosage: 6GM (3GM, 2 IN 1 D), ORAL
     Route: 048
     Dates: start: 20121030, end: 201303

REACTIONS (6)
  - Nasopharyngitis [None]
  - Oropharyngeal pain [None]
  - Aphonia [None]
  - Headache [None]
  - Productive cough [None]
  - Asthenia [None]
